FAERS Safety Report 4924187-7 (Version None)
Quarter: 2006Q1

REPORT INFORMATION
  Report Type: 
  Country: None (occurrence: None)
  Receive Date: 20060227
  Receipt Date: 20051208
  Transmission Date: 20060701
  Serious: Yes (Other)
  Sender: FDA-Public Use
  Company Number: US-GLAXOSMITHKLINE-A0585154A

PATIENT
  Age: 18 Year
  Sex: Female
  Weight: 59.1 kg

DRUGS (3)
  1. WELLBUTRIN XL [Suspect]
     Route: 048
     Dates: start: 20051105
  2. AMBIEN [Concomitant]
     Indication: INSOMNIA
     Dosage: 12.5MG AT NIGHT
     Route: 048
     Dates: start: 20051104, end: 20051201
  3. YASMIN [Concomitant]
     Route: 048
     Dates: start: 20020101

REACTIONS (3)
  - FALL [None]
  - GRAND MAL CONVULSION [None]
  - POSTICTAL STATE [None]
